FAERS Safety Report 21108731 (Version 1)
Quarter: 2022Q3

REPORT INFORMATION
  Report Type: Spontaneous
  Country: FR (occurrence: FR)
  Receive Date: 20220721
  Receipt Date: 20220721
  Transmission Date: 20221027
  Serious: Yes (Hospitalization)
  Sender: FDA-Public Use
  Company Number: None

PATIENT
  Age: 52 Year
  Sex: Male

DRUGS (7)
  1. BISOPROLOL FUMARATE [Suspect]
     Active Substance: BISOPROLOL FUMARATE
     Indication: Acute coronary syndrome
     Dosage: BISOPROLOL (FUMARATE DE) , THERAPY START DATE AND END DATE : ASKU , UNIT DOSE : 5 MG , FREQUENCY TIM
  2. ASPIRIN [Suspect]
     Active Substance: ASPIRIN
     Indication: Acute coronary syndrome
     Dosage: UNIT DOSE : 250 MG , FREQUENCY TIME : 1 TOTAL , DURATION : 1 DAYS
     Dates: start: 20211210, end: 20211210
  3. NITROGLYCERIN [Concomitant]
     Active Substance: NITROGLYCERIN
     Indication: Product used for unknown indication
     Dosage: 0.15 MG/DOSE, ORAL SPRAY SOLUTION , UNIT DOSE : 1 DF , FREQUENCY TIME : 1 TOTAL , DURATION : 1 DAYS
     Dates: start: 20211210, end: 20211210
  4. CLOPIDOGREL [Concomitant]
     Active Substance: CLOPIDOGREL BISULFATE
     Indication: Product used for unknown indication
     Dosage: UNIT DOSE : 75 MG , FREQUENCY TIME : 1 DAY
     Dates: start: 202106
  5. SIMVASTATIN [Concomitant]
     Active Substance: SIMVASTATIN
     Indication: Product used for unknown indication
     Dosage: UNIT DOSE : 10 MG , FREQUENCY TIME : 1 DAYS
     Dates: start: 202106
  6. RAMIPRIL [Concomitant]
     Active Substance: RAMIPRIL
     Indication: Product used for unknown indication
     Dosage: THERAPY START DATE : ASKU , UNIT DOSE : 1.25 MG , FREQUENCY TIME : 1 DAYS
  7. VALSARTAN [Concomitant]
     Active Substance: VALSARTAN
     Indication: Product used for unknown indication
     Dosage: THERAPY START DATE : ASKU , UNIT DOSE : 40 MG , FREQUENCY TIME : 1 DAYS

REACTIONS (2)
  - Respiratory distress [Recovered/Resolved]
  - Asthmatic crisis [Recovered/Resolved]

NARRATIVE: CASE EVENT DATE: 20211210
